FAERS Safety Report 5065113-2 (Version None)
Quarter: 2006Q3

REPORT INFORMATION
  Report Type: 
  Country: None (occurrence: None)
  Receive Date: 20060727
  Receipt Date: 20060727
  Transmission Date: 20061208
  Serious: No
  Sender: FDA-Public Use
  Company Number: None

PATIENT
  Age: 88 Year
  Sex: Female
  Weight: 66.8 kg

DRUGS (1)
  1. MAXIPIME [Suspect]
     Indication: URINARY TRACT INFECTION
     Dosage: 2GM  EVERY 24 HOURS  I.V.
     Route: 042
     Dates: start: 20060713, end: 20060726

REACTIONS (2)
  - OEDEMA PERIPHERAL [None]
  - URTICARIA [None]
